FAERS Safety Report 14205094 (Version 1)
Quarter: 2017Q4

REPORT INFORMATION
  Report Type: Spontaneous
  Country: US (occurrence: None)
  Receive Date: 20171117
  Receipt Date: 20171117
  Transmission Date: 20180321
  Serious: No
  Sender: FDA-Public Use
  Company Number: None

PATIENT
  Age: 31 Year
  Sex: Male

DRUGS (1)
  1. OCREVUS [Suspect]
     Active Substance: OCRELIZUMAB
     Indication: MULTIPLE SCLEROSIS
     Dosage: 300MG ON DAY 1 AND DAY 14 IV
     Route: 042
     Dates: start: 20171005

REACTIONS (3)
  - Malaise [None]
  - Heart rate increased [None]
  - Flushing [None]

NARRATIVE: CASE EVENT DATE: 20171006
